FAERS Safety Report 7555542-7 (Version None)
Quarter: 2011Q2

REPORT INFORMATION
  Report Type: 
  Country: None (occurrence: None)
  Receive Date: 20110617
  Receipt Date: 20050531
  Transmission Date: 20111010
  Serious: Yes (Other)
  Sender: FDA-Public Use
  Company Number: PHNU2005DE02119

PATIENT
  Age: 75 Year
  Sex: Female
  Weight: 29.1 kg

DRUGS (5)
  1. PHENHYDAN [Concomitant]
  2. NOVALGIN /SCH/ [Concomitant]
  3. MST [Concomitant]
     Dates: start: 20050218
  4. FLUVASTATIN SODIUM [Suspect]
     Indication: HYPERCHOLESTEROLAEMIA
     Dosage: 80 MG, QD
     Route: 048
     Dates: start: 20050208, end: 20050224
  5. CALCIUM CARBONATE [Concomitant]

REACTIONS (1)
  - GENERAL PHYSICAL HEALTH DETERIORATION [None]
